FAERS Safety Report 9152913 (Version 1)
Quarter: 2013Q1

REPORT INFORMATION
  Report Type: Spontaneous
  Country: US (occurrence: US)
  Receive Date: 20130124
  Receipt Date: 20130124
  Transmission Date: 20140127
  Serious: Yes (Hospitalization, Other)
  Sender: FDA-Public Use
  Company Number: US-RB-048829-13

PATIENT
  Age: 34 Year
  Sex: Female

DRUGS (2)
  1. SUBOXONE FILM [Suspect]
     Dosage: SUBOXONE FILM
     Route: 060
     Dates: start: 20121124, end: 20121225
  2. SUBOXONE FILM [Suspect]
     Indication: DRUG DEPENDENCE
     Dosage: SUBOXONE FILM; DOSING DETAILS UNKNOWN
     Route: 060
     Dates: end: 2013

REACTIONS (4)
  - Vomiting [Recovered/Resolved]
  - Confusional state [Recovered/Resolved]
  - Abdominal pain [Recovered/Resolved]
  - Drug withdrawal syndrome [Not Recovered/Not Resolved]
